FAERS Safety Report 12242117 (Version 1)
Quarter: 2016Q2

REPORT INFORMATION
  Report Type: Spontaneous
  Country: US (occurrence: US)
  Receive Date: 20160406
  Receipt Date: 20160406
  Transmission Date: 20160815
  Serious: No
  Sender: FDA-Public Use
  Company Number: US-PFIZER INC-2016153344

PATIENT
  Age: 43 Year
  Sex: Female
  Weight: 57.15 kg

DRUGS (5)
  1. LYRICA [Suspect]
     Active Substance: PREGABALIN
     Indication: PAIN
  2. COPPER [Concomitant]
     Active Substance: COPPER
     Dosage: 3 MG, DAILY
     Route: 048
  3. LYRICA [Suspect]
     Active Substance: PREGABALIN
     Indication: PARAESTHESIA
     Dosage: 1 DF, DAILY
     Route: 048
  4. LYRICA [Suspect]
     Active Substance: PREGABALIN
     Indication: PAIN IN EXTREMITY
     Dosage: 75 MG, 2X/DAY
     Route: 048
     Dates: start: 201602
  5. COPPER [Concomitant]
     Active Substance: COPPER
     Indication: COPPER DEFICIENCY
     Dosage: 6 MG, DAILY
     Route: 048
     Dates: start: 20160126

REACTIONS (5)
  - Hypoaesthesia [Unknown]
  - Dysgraphia [Unknown]
  - Feeling drunk [Unknown]
  - Intentional product misuse [Not Recovered/Not Resolved]
  - Discomfort [Unknown]
